FAERS Safety Report 8577781-9 (Version None)
Quarter: 2012Q3

REPORT INFORMATION
  Report Type: 
  Country: None (occurrence: None)
  Receive Date: 20120808
  Receipt Date: 20120730
  Transmission Date: 20120928
  Serious: Yes (Other)
  Sender: FDA-Public Use
  Company Number: US-BIOGENIDEC-2012BI028106

PATIENT
  Age: 38 Year
  Sex: Female

DRUGS (5)
  1. AVONEX [Suspect]
     Indication: MULTIPLE SCLEROSIS
     Route: 030
     Dates: start: 20000901, end: 20030101
  2. AVONEX [Suspect]
     Route: 030
     Dates: start: 20030101
  3. MOBIC [Concomitant]
  4. MEDROL [Concomitant]
  5. FORTEO [Concomitant]

REACTIONS (7)
  - HIP ARTHROPLASTY [None]
  - POLYARTHRITIS [None]
  - OSTEOPOROSIS [None]
  - FATIGUE [None]
  - OSTEOPOROTIC FRACTURE [None]
  - ANKYLOSING SPONDYLITIS [None]
  - NERVE COMPRESSION [None]
